FAERS Safety Report 5273160-0 (Version None)
Quarter: 2007Q1

REPORT INFORMATION
  Report Type: 
  Country: None (occurrence: None)
  Receive Date: 20070322
  Receipt Date: 20070319
  Transmission Date: 20070707
  Serious: Yes (Disabling)
  Sender: FDA-Public Use
  Company Number: US-BOEHRINGER INGELHEIM PHARMACEUTICALS, INC.-2006-BP-10898BP

PATIENT
  Sex: Female
  Weight: 22.23 kg

DRUGS (16)
  1. TIPRANAVIR/RITONAVIR SOLUTION [Suspect]
     Indication: HIV INFECTION
     Dosage: TPV/RTV 510 MG/202 MG
     Route: 048
     Dates: start: 20061002, end: 20061219
  2. TIPRANAVIR/RITONAVIR SOLUTION [Suspect]
     Dosage: TPV/RTV 510 MG/202 MG
     Route: 048
     Dates: start: 20040721, end: 20060915
  3. ABACAVIR [Concomitant]
     Indication: RETROVIRAL INFECTION
     Route: 048
     Dates: start: 20040721
  4. ABACAVIR [Concomitant]
     Route: 048
     Dates: start: 20061002
  5. SIDERAL [Concomitant]
     Indication: MEDICAL DIET
     Route: 048
     Dates: start: 20051006
  6. FOLIC ACID [Concomitant]
     Indication: MEDICAL DIET
     Route: 048
     Dates: start: 19950302
  7. BACTRIM [Concomitant]
     Indication: ANTIFUNGAL PROPHYLAXIS
     Route: 048
     Dates: start: 19950302
  8. ZITHROMAX [Concomitant]
     Indication: ANTIBIOTIC PROPHYLAXIS
     Route: 048
     Dates: start: 20030220
  9. PERIACTIN [Concomitant]
     Indication: INCREASED APPETITE
     Route: 048
     Dates: start: 20051101
  10. CALCIUM GLUCONATE [Concomitant]
     Indication: MINERAL SUPPLEMENTATION
     Route: 048
     Dates: start: 20051011
  11. MULTI-VITAMINS [Concomitant]
     Indication: MEDICAL DIET
     Route: 048
     Dates: start: 19950302
  12. PEDIASURE [Concomitant]
     Indication: MEDICAL DIET
     Route: 048
     Dates: start: 20060401
  13. EPIVIR [Concomitant]
     Indication: RETROVIRAL INFECTION
     Route: 048
     Dates: start: 20060915
  14. EPIVIR [Concomitant]
     Route: 048
     Dates: start: 20061002
  15. VIREAD [Concomitant]
     Indication: RETROVIRAL INFECTION
     Route: 048
     Dates: start: 20040721
  16. VIREAD [Concomitant]
     Route: 048
     Dates: start: 20061002

REACTIONS (2)
  - COAGULATION TIME PROLONGED [None]
  - CONTUSION [None]
